FAERS Safety Report 22061282 (Version 1)
Quarter: 2023Q1

REPORT INFORMATION
  Report Type: Other
  Country: None (occurrence: PT)
  Receive Date: 20230303
  Receipt Date: 20230303
  Transmission Date: 20230417
  Serious: Yes (Hospitalization, Other)
  Sender: FDA-Public Use
  Company Number: PT-The ACME Laboratories Ltd-2138687

PATIENT
  Age: 66 Year
  Sex: Male

DRUGS (1)
  1. ZOLPIDEM TARTRATE [Suspect]
     Active Substance: ZOLPIDEM TARTRATE
     Indication: Insomnia
     Route: 065

REACTIONS (5)
  - Disorientation [Unknown]
  - Loss of personal independence in daily activities [Unknown]
  - Somnambulism [Unknown]
  - Memory impairment [Unknown]
  - Drug abuse [Unknown]
